FAERS Safety Report 17426891 (Version 1)
Quarter: 2020Q1

REPORT INFORMATION
  Report Type: Spontaneous
  Country: IN (occurrence: IN)
  Receive Date: 20200217
  Receipt Date: 20200217
  Transmission Date: 20200409
  Serious: Yes (Other)
  Sender: FDA-Public Use
  Company Number: IN-CMP PHARMA-2020CMP00004

PATIENT
  Age: 62 Year
  Sex: Female

DRUGS (1)
  1. TRIAMCINOLONE [Suspect]
     Active Substance: TRIAMCINOLONE
     Indication: POST PROCEDURAL INFLAMMATION
     Dosage: 40 MG/ML AT 0.5 ML, ONCE
     Route: 031

REACTIONS (3)
  - Necrotising scleritis [Recovered/Resolved]
  - Keratitis fungal [Recovered/Resolved]
  - Cataract [Unknown]
